FAERS Safety Report 5812612-9 (Version None)
Quarter: 2008Q3

REPORT INFORMATION
  Report Type: 
  Country: None (occurrence: None)
  Receive Date: 20080714
  Receipt Date: 20080714
  Transmission Date: 20090109
  Serious: No
  Sender: FDA-Public Use
  Company Number: None

PATIENT
  Age: 31 Year
  Sex: Female
  Weight: 49.8957 kg

DRUGS (2)
  1. CIPROFLOXACIN 500 MG COBALT - SUBSTITUTED FOR [Suspect]
     Indication: DEHYDRATION
     Dosage: 500 MG 2 X DAILY - 5 DAYS PO
     Route: 048
     Dates: start: 20070731, end: 20070804
  2. CIPROFLOXACIN 500 MG COBALT - SUBSTITUTED FOR [Suspect]
     Indication: GASTROENTERITIS
     Dosage: 500 MG 2 X DAILY - 5 DAYS PO
     Route: 048
     Dates: start: 20070731, end: 20070804

REACTIONS (22)
  - ACTIVITIES OF DAILY LIVING IMPAIRED [None]
  - ANGER [None]
  - ARTHRALGIA [None]
  - DEPRESSION SUICIDAL [None]
  - DRUG TOXICITY [None]
  - EMOTIONAL DISTRESS [None]
  - FOOD ALLERGY [None]
  - GAIT DISTURBANCE [None]
  - GASTROINTESTINAL DISORDER [None]
  - HYPERSOMNIA [None]
  - IRRITABILITY [None]
  - MALAISE [None]
  - MENTAL DISORDER [None]
  - MOOD SWINGS [None]
  - PAIN [None]
  - PAIN IN EXTREMITY [None]
  - STOMACH DISCOMFORT [None]
  - STRESS [None]
  - SUICIDAL IDEATION [None]
  - SWELLING [None]
  - TENDON PAIN [None]
  - VISUAL IMPAIRMENT [None]
